FAERS Safety Report 5269610-6 (Version None)
Quarter: 2007Q1

REPORT INFORMATION
  Report Type: 
  Country: None (occurrence: None)
  Receive Date: 20070314
  Receipt Date: 20070227
  Transmission Date: 20070707
  Serious: Yes (Other)
  Sender: FDA-Public Use
  Company Number: A-CH2007-14261

PATIENT
  Age: 40 Year
  Sex: Female
  Weight: 68 kg

DRUGS (8)
  1. TRACLEER [Suspect]
     Indication: PULMONARY HYPERTENSION
     Dosage: 31.25 MG, BID, ORAL
     Route: 048
     Dates: start: 20070127
  2. METHADONE HCL [Suspect]
     Dates: start: 20000101
  3. TRIZIVIR (ZIDOVUDINE, ABACAVIR SULFATE, LAMIVUDINE) [Concomitant]
  4. COTRIM (TRIMETHOPRIM, SULFAMETHOXAZOLE) [Concomitant]
  5. FOLIC ACID [Concomitant]
  6. BETABION (THIAMINE HYDROCHLORIDE) [Concomitant]
  7. STAURODORM (FLURAZEPAM) [Concomitant]
  8. DONEURIN (DOXEPIN HYDROCHLORIDE) [Concomitant]

REACTIONS (2)
  - DRUG INTERACTION [None]
  - DRUG WITHDRAWAL SYNDROME [None]
